FAERS Safety Report 14249901 (Version 1)
Quarter: 2017Q4

REPORT INFORMATION
  Report Type: Spontaneous
  Country: US (occurrence: US)
  Receive Date: 20171205
  Receipt Date: 20171205
  Transmission Date: 20180321
  Serious: Yes (Life-Threatening, Hospitalization, Other)
  Sender: FDA-Public Use
  Company Number: None

PATIENT
  Sex: Male
  Weight: 88.2 kg

DRUGS (12)
  1. MELOXICAM. [Concomitant]
     Active Substance: MELOXICAM
  2. VITAMIN B12 [Concomitant]
     Active Substance: CYANOCOBALAMIN
  3. FARXIGA [Suspect]
     Active Substance: DAPAGLIFLOZIN PROPANEDIOL
     Indication: TYPE 2 DIABETES MELLITUS
     Route: 048
     Dates: start: 20171114, end: 20171114
  4. LYRICA [Concomitant]
     Active Substance: PREGABALIN
  5. TRULICITY [Concomitant]
     Active Substance: DULAGLUTIDE
  6. LISINOPRIL. [Suspect]
     Active Substance: LISINOPRIL
     Indication: TYPE 2 DIABETES MELLITUS
     Dosage: ?          QUANTITY:1 TABLET(S);?
     Route: 048
     Dates: start: 20140828, end: 20171114
  7. IMITREX [Concomitant]
     Active Substance: SUMATRIPTAN SUCCINATE
  8. ANDROGEL [Concomitant]
     Active Substance: TESTOSTERONE
  9. GLYBURIDE. [Concomitant]
     Active Substance: GLYBURIDE
  10. NEXIUM [Concomitant]
     Active Substance: ESOMEPRAZOLE MAGNESIUM
  11. ASPIRIN. [Concomitant]
     Active Substance: ASPIRIN
  12. DIPHENHYDRAMINE. [Concomitant]
     Active Substance: DIPHENHYDRAMINE

REACTIONS (14)
  - Pruritus [None]
  - Hypoaesthesia [None]
  - Swollen tongue [None]
  - Ear pain [None]
  - Paraesthesia oral [None]
  - Pain in jaw [None]
  - Balance disorder [None]
  - Respiratory distress [None]
  - Oropharyngeal pain [None]
  - Dyspnoea [None]
  - Tinnitus [None]
  - Dysphagia [None]
  - Drug interaction [None]
  - Urticaria [None]

NARRATIVE: CASE EVENT DATE: 20171114
